FAERS Safety Report 13782303 (Version 1)
Quarter: 2017Q3

REPORT INFORMATION
  Report Type: Spontaneous
  Country: US (occurrence: US)
  Receive Date: 20170724
  Receipt Date: 20170724
  Transmission Date: 20171127
  Serious: Yes (Disabling)
  Sender: FDA-Public Use
  Company Number: None

PATIENT
  Age: 40 Year
  Sex: Female
  Weight: 90 kg

DRUGS (1)
  1. LISINOPRIL AND HYDROCHLOROTHIAZIDE [Suspect]
     Active Substance: HYDROCHLOROTHIAZIDE\LISINOPRIL
     Indication: HYPERTENSION
     Dosage: ?          OTHER STRENGTH:MG;QUANTITY:1 TABLET(S);?
     Route: 048
     Dates: start: 20170525, end: 20170720

REACTIONS (6)
  - Depression [None]
  - Menstrual disorder [None]
  - Fatigue [None]
  - Cough [None]
  - Dizziness [None]
  - Arthralgia [None]

NARRATIVE: CASE EVENT DATE: 20170720
